FAERS Safety Report 9996297 (Version 1)
Quarter: 2014Q1

REPORT INFORMATION
  Report Type: Spontaneous
  Country: US (occurrence: None)
  Receive Date: 20140310
  Receipt Date: 20140310
  Transmission Date: 20141002
  Serious: Yes (Hospitalization, Other)
  Sender: FDA-Public Use
  Company Number: None

PATIENT
  Age: 12 Year
  Sex: Male
  Weight: 81.65 kg

DRUGS (1)
  1. ONDANSETRON [Suspect]
     Indication: VIRAL INFECTION
     Dosage: 1 PILL/ 4MG AS NEEDED TAKEN BY MOUTH
     Route: 048
     Dates: start: 20140211, end: 20140305

REACTIONS (1)
  - Vision blurred [None]
